FAERS Safety Report 10558178 (Version 1)
Quarter: 2014Q4

REPORT INFORMATION
  Report Type: Spontaneous
  Country: GB (occurrence: None)
  Receive Date: 20141029
  Receipt Date: 20141029
  Transmission Date: 20150529
  Serious: Yes (Life-Threatening, Hospitalization)
  Sender: FDA-Public Use
  Company Number: GB-LHC-2014097

PATIENT
  Sex: Female

DRUGS (2)
  1. COMPRESSED MEDICAL OXYGEN [Suspect]
     Active Substance: OXYGEN
     Indication: CHRONIC OBSTRUCTIVE PULMONARY DISEASE
     Dosage: 1 1PM/21 HOURS DOMICILLIARY, 2 1PM/3 HOURS (AMBULATORY)
     Route: 055
  2. COMPRESSED MEDICAL OXYGEN [Suspect]
     Active Substance: OXYGEN
     Indication: RESPIRATORY FAILURE
     Dosage: 1 1PM/21 HOURS DOMICILLIARY, 2 1PM/3 HOURS (AMBULATORY)
     Route: 055

REACTIONS (1)
  - Intentional overdose [None]
